FAERS Safety Report 9386198 (Version 2)
Quarter: 2013Q3

REPORT INFORMATION
  Report Type: Spontaneous
  Country: JP (occurrence: JP)
  Receive Date: 20130708
  Receipt Date: 20130820
  Transmission Date: 20140515
  Serious: Yes (Death)
  Sender: FDA-Public Use
  Company Number: JP-ROCHE-1245231

PATIENT
  Age: 10 Decade
  Sex: 0

DRUGS (1)
  1. MIRCERA [Suspect]
     Indication: NEPHROGENIC ANAEMIA
     Dosage: UNCERTAIN DOSAGE AND ADMINISTERING TWICE
     Route: 058
     Dates: start: 20130527, end: 20130610

REACTIONS (1)
  - Death [Fatal]
